FAERS Safety Report 19856826 (Version 1)
Quarter: 2021Q3

REPORT INFORMATION
  Report Type: Spontaneous
  Country: US (occurrence: US)
  Receive Date: 20210920
  Receipt Date: 20210920
  Transmission Date: 20211014
  Serious: No
  Sender: FDA-Public Use
  Company Number: US-CURIUM-2021000634

PATIENT
  Sex: Female
  Weight: 94.1 kg

DRUGS (2)
  1. SESTAMIBI [Suspect]
     Active Substance: TECHNETIUM TC-99M SESTAMIBI
     Route: 065
     Dates: start: 20210729, end: 20210729
  2. ULTRA?TECHNEKOW [Suspect]
     Active Substance: TECHNETIUM TC-99M
     Route: 065
     Dates: start: 20210729, end: 20210729

REACTIONS (1)
  - Scan myocardial perfusion abnormal [Recovered/Resolved]

NARRATIVE: CASE EVENT DATE: 20210729
